FAERS Safety Report 7133399-6 (Version None)
Quarter: 2010Q4

REPORT INFORMATION
  Report Type: 
  Country: None (occurrence: None)
  Receive Date: 20101202
  Receipt Date: 20101129
  Transmission Date: 20110411
  Serious: Yes (Hospitalization, Other)
  Sender: FDA-Public Use
  Company Number: US-PFIZER INC-2006018620

PATIENT
  Sex: Female
  Weight: 61 kg

DRUGS (18)
  1. LIPITOR [Suspect]
     Indication: HYPERLIPIDAEMIA
     Dosage: 10 MG, 1X/DAY
     Route: 048
     Dates: start: 20010101, end: 20100101
  2. LIPITOR [Suspect]
     Indication: BLOOD CHOLESTEROL INCREASED
  3. TOPAMAX [Suspect]
     Indication: MIGRAINE
     Dosage: 50 MG, UNK
  4. OXYCONTIN [Suspect]
     Indication: ILL-DEFINED DISORDER
     Route: 065
     Dates: start: 20051201, end: 20051201
  5. XANAX [Concomitant]
     Dosage: UNK
     Route: 065
  6. SYNTHROID [Concomitant]
     Dosage: UNK
     Route: 065
  7. ACETYLSALICYLIC ACID [Concomitant]
     Dosage: UNK
     Route: 065
  8. TRIAMTERENE [Concomitant]
     Dosage: UNK
     Route: 065
  9. ALPHAGAN [Concomitant]
     Dosage: UNK
     Route: 065
  10. XALATAN [Concomitant]
     Dosage: UNK
     Route: 065
  11. VITAMIN E [Concomitant]
     Dosage: UNK
     Route: 065
  12. MULTI-VITAMINS [Concomitant]
     Dosage: UNK
     Route: 065
  13. GLUCOSAMINE [Concomitant]
     Dosage: UNK
     Route: 065
  14. CHONDROITIN [Concomitant]
     Dosage: UNK
     Route: 065
  15. VALERIANA COMP [Concomitant]
     Dosage: UNK
     Route: 065
  16. ASCRIPTIN A/D [Concomitant]
     Dosage: UNK
     Route: 065
  17. XANAX [Concomitant]
     Dosage: UNK, AS NEEDED
  18. PHENERGAN [Concomitant]
     Dosage: UNK

REACTIONS (25)
  - ANXIETY [None]
  - BLOOD TRIGLYCERIDES INCREASED [None]
  - CEREBROVASCULAR ACCIDENT [None]
  - CONSTIPATION [None]
  - DECREASED APPETITE [None]
  - DEHYDRATION [None]
  - DEPRESSION [None]
  - DRUG DISPENSING ERROR [None]
  - FOOD INTOLERANCE [None]
  - HEADACHE [None]
  - INSOMNIA [None]
  - INTRAOCULAR PRESSURE TEST ABNORMAL [None]
  - LOSS OF CONSCIOUSNESS [None]
  - MIGRAINE [None]
  - MUSCLE DISORDER [None]
  - MUSCLE SPASMS [None]
  - NAUSEA [None]
  - POLYMENORRHOEA [None]
  - RESTLESS LEGS SYNDROME [None]
  - RETCHING [None]
  - SUICIDAL IDEATION [None]
  - TRANSIENT ISCHAEMIC ATTACK [None]
  - VOMITING [None]
  - WEIGHT DECREASED [None]
  - WEIGHT LOSS POOR [None]
